FAERS Safety Report 11163387 (Version 1)
Quarter: 2015Q2

REPORT INFORMATION
  Report Type: Spontaneous
  Country: US (occurrence: None)
  Receive Date: 20150603
  Receipt Date: 20150603
  Transmission Date: 20150821
  Serious: Yes (Hospitalization)
  Sender: FDA-Public Use
  Company Number: None

PATIENT
  Age: 70 Year
  Sex: Female
  Weight: 81.8 kg

DRUGS (13)
  1. METOPROLOL (TOPROL-XL) [Concomitant]
  2. NEXIUM [Concomitant]
     Active Substance: ESOMEPRAZOLE MAGNESIUM
  3. LASIX [Concomitant]
     Active Substance: FUROSEMIDE
  4. LACTULOSE (CHRONULAC) [Concomitant]
  5. POTASSIUM CHLORIDE. [Concomitant]
     Active Substance: POTASSIUM CHLORIDE
  6. MULTIVITAMIN [Concomitant]
     Active Substance: VITAMINS
  7. ALPRAZOLAM (XANAX) [Concomitant]
  8. SPIRONOLACTONE (ALDACTONE) [Concomitant]
  9. TRAMADOL (ULTRAM) [Concomitant]
  10. RIFAXIMIN (XIFAXAN) [Concomitant]
  11. HARVONI [Suspect]
     Active Substance: LEDIPASVIR\SOFOSBUVIR
     Indication: HEPATITIS C
     Route: 048
     Dates: start: 20150401
  12. REBETOL [Suspect]
     Active Substance: RIBAVIRIN
     Indication: HEPATITIS C
     Route: 048
     Dates: start: 20150401
  13. CALCIUM CARB/VIT D3/MINERALS [Concomitant]

REACTIONS (3)
  - Bowel movement irregularity [None]
  - Escherichia urinary tract infection [None]
  - Hepatic encephalopathy [None]

NARRATIVE: CASE EVENT DATE: 20150509
